FAERS Safety Report 25410483 (Version 2)
Quarter: 2025Q2

REPORT INFORMATION
  Report Type: Report from Study
  Country: US (occurrence: US)
  Receive Date: 20250608
  Receipt Date: 20250611
  Transmission Date: 20250716
  Serious: Yes (Other)
  Sender: ABBVIE
  Company Number: US-ABBVIE-6303115

PATIENT
  Age: 58 Year
  Sex: Male

DRUGS (1)
  1. VYALEV [Suspect]
     Active Substance: FOSCARBIDOPA\FOSLEVODOPA
     Indication: Parkinson^s disease
     Route: 058
     Dates: start: 20250515, end: 20250525

REACTIONS (6)
  - Soft tissue infection [Recovering/Resolving]
  - Infusion site infection [Recovering/Resolving]
  - Infusion site pain [Recovering/Resolving]
  - Infusion site erythema [Recovering/Resolving]
  - Infusion site inflammation [Recovering/Resolving]
  - Wound [Not Recovered/Not Resolved]

NARRATIVE: CASE EVENT DATE: 20250101
